FAERS Safety Report 12427049 (Version 4)
Quarter: 2016Q3

REPORT INFORMATION
  Report Type: Spontaneous
  Country: IT (occurrence: IT)
  Receive Date: 20160601
  Receipt Date: 20160720
  Transmission Date: 20161109
  Serious: Yes (Hospitalization, Other)
  Sender: FDA-Public Use
  Company Number: IT-ALLERGAN-1658442US

PATIENT
  Age: 49 Year
  Sex: Female

DRUGS (1)
  1. ESMYA [Suspect]
     Active Substance: ULIPRISTAL ACETATE
     Indication: UTERINE LEIOMYOMA
     Dosage: 5 MG, QD
     Route: 048
     Dates: start: 20160130, end: 20160425

REACTIONS (3)
  - Endometrial thickening [Recovered/Resolved]
  - Endometrial adenocarcinoma [Recovered/Resolved]
  - Menometrorrhagia [Recovered/Resolved]

NARRATIVE: CASE EVENT DATE: 20160514
